FAERS Safety Report 14362749 (Version 1)
Quarter: 2018Q1

REPORT INFORMATION
  Report Type: Spontaneous
  Country: US (occurrence: US)
  Receive Date: 20180108
  Receipt Date: 20180108
  Transmission Date: 20180509
  Serious: No
  Sender: FDA-Public Use
  Company Number: US-JNJFOC-20171120338

PATIENT
  Age: 60 Year
  Sex: Female
  Weight: 74.84 kg

DRUGS (4)
  1. IBUPROFEN. [Concomitant]
     Active Substance: IBUPROFEN
     Route: 065
  2. STELARA [Suspect]
     Active Substance: USTEKINUMAB
     Indication: PSORIASIS
     Route: 058
     Dates: start: 201610
  3. URSODIOL. [Concomitant]
     Active Substance: URSODIOL
     Route: 065
  4. STELARA [Suspect]
     Active Substance: USTEKINUMAB
     Indication: PSORIATIC ARTHROPATHY
     Route: 058
     Dates: start: 201610

REACTIONS (2)
  - Off label use [Unknown]
  - Adverse event [Unknown]

NARRATIVE: CASE EVENT DATE: 201610
